FAERS Safety Report 21587458 (Version 1)
Quarter: 2022Q4

REPORT INFORMATION
  Report Type: Spontaneous
  Country: US (occurrence: US)
  Receive Date: 20221114
  Receipt Date: 20221114
  Transmission Date: 20230113
  Serious: Yes (Hospitalization)
  Sender: FDA-Public Use
  Company Number: US-CADILA HEALTHCARE LIMITED-US-ZYDUS-084547

PATIENT

DRUGS (1)
  1. AMLODIPINE [Suspect]
     Active Substance: AMLODIPINE BESYLATE
     Indication: Suicide attempt
     Dosage: 740 MILLIGRAM
     Route: 065

REACTIONS (8)
  - Acute kidney injury [Unknown]
  - Encephalopathy [Unknown]
  - Hypoxia [Unknown]
  - Lactic acidosis [Unknown]
  - Cardiac arrest [Recovered/Resolved]
  - Circulatory collapse [Recovered/Resolved]
  - Overdose [Unknown]
  - Suicide attempt [Unknown]
